FAERS Safety Report 12140969 (Version 1)
Quarter: 2016Q1

REPORT INFORMATION
  Report Type: Spontaneous
  Country: US (occurrence: None)
  Receive Date: 20160302
  Receipt Date: 20160302
  Transmission Date: 20160526
  Serious: Yes (Life-Threatening, Other)
  Sender: FDA-Public Use
  Company Number: None

PATIENT
  Age: 9 Year
  Sex: Male
  Weight: 26.76 kg

DRUGS (1)
  1. GUANFACINE ER 2 MG UNKNOWN [Suspect]
     Active Substance: GUANFACINE
     Indication: ATTENTION DEFICIT/HYPERACTIVITY DISORDER
     Dosage: 1 PILL QD ORAL
     Route: 048
     Dates: start: 20150222, end: 20160222

REACTIONS (6)
  - Dyspnoea [None]
  - Weight decreased [None]
  - Eating disorder [None]
  - Glossodynia [None]
  - Tongue ulceration [None]
  - Swollen tongue [None]

NARRATIVE: CASE EVENT DATE: 20160222
